FAERS Safety Report 20462043 (Version 1)
Quarter: 2022Q1

REPORT INFORMATION
  Report Type: Spontaneous
  Country: FR (occurrence: FR)
  Receive Date: 20220211
  Receipt Date: 20220211
  Transmission Date: 20220424
  Serious: Yes (Hospitalization)
  Sender: FDA-Public Use
  Company Number: FR-LUPIN PHARMACEUTICALS INC.-2022-01873

PATIENT
  Age: 81 Year
  Sex: Male

DRUGS (4)
  1. METHYLPREDNISOLONE [Suspect]
     Active Substance: METHYLPREDNISOLONE
     Indication: Renal failure
     Dosage: 500 MG 3 PULSES
     Route: 042
     Dates: start: 2020
  2. NIVOLUMAB [Concomitant]
     Active Substance: NIVOLUMAB
     Indication: Non-small cell lung cancer metastatic
     Dosage: 240 MG
     Route: 065
     Dates: start: 202002, end: 20200428
  3. PREDNISOLONE [Concomitant]
     Active Substance: PREDNISOLONE
     Indication: Renal failure
     Dosage: 1 MILLIGRAM/KILOGRAM
     Route: 048
     Dates: start: 2020
  4. RITUXIMAB [Concomitant]
     Active Substance: RITUXIMAB
     Indication: Renal failure
     Dosage: 375 MILLIGRAM/SQ. METER
     Route: 065
     Dates: start: 20200608

REACTIONS (2)
  - Drug ineffective for unapproved indication [Unknown]
  - Off label use [Unknown]

NARRATIVE: CASE EVENT DATE: 20200101
